FAERS Safety Report 4318155-6 (Version None)
Quarter: 2004Q1

REPORT INFORMATION
  Report Type: 
  Country: None (occurrence: None)
  Receive Date: 20040317
  Receipt Date: 20040305
  Transmission Date: 20041129
  Serious: Yes (Hospitalization)
  Sender: FDA-Public Use
  Company Number: FR-ROCHE-361097

PATIENT
  Age: 32 Year
  Sex: Male

DRUGS (5)
  1. FUZEON [Suspect]
     Indication: HIV INFECTION
     Route: 058
     Dates: start: 20040301
  2. FUZEON [Suspect]
     Route: 058
     Dates: start: 20040216, end: 20040229
  3. ZIAGEN [Concomitant]
     Indication: HIV INFECTION
  4. NORVIR [Concomitant]
     Indication: HIV INFECTION
  5. AGENERASE [Concomitant]
     Indication: HIV INFECTION

REACTIONS (4)
  - ERYTHEMA [None]
  - LOCALISED OEDEMA [None]
  - OEDEMA [None]
  - OEDEMA PERIPHERAL [None]
